FAERS Safety Report 13572916 (Version 2)
Quarter: 2017Q2

REPORT INFORMATION
  Report Type: Spontaneous
  Country: US (occurrence: US)
  Receive Date: 20170523
  Receipt Date: 20170613
  Transmission Date: 20170830
  Serious: Yes (Other)
  Sender: FDA-Public Use
  Company Number: US-GLAXOSMITHKLINE-US2017072812

PATIENT
  Sex: Female
  Weight: 52.15 kg

DRUGS (1)
  1. BREO ELLIPTA [Suspect]
     Active Substance: FLUTICASONE FUROATE\VILANTEROL TRIFENATATE
     Indication: ASTHMA
     Dosage: 1 PUFF(S), 1D
     Route: 055
     Dates: start: 2016, end: 201705

REACTIONS (9)
  - Pneumonia [Not Recovered/Not Resolved]
  - Cough [Not Recovered/Not Resolved]
  - Blood pressure increased [Recovered/Resolved]
  - Rhinitis [Not Recovered/Not Resolved]
  - Upper respiratory tract infection [Unknown]
  - Sinusitis [Not Recovered/Not Resolved]
  - Rhinorrhoea [Unknown]
  - Bronchitis [Not Recovered/Not Resolved]
  - Candida infection [Not Recovered/Not Resolved]

NARRATIVE: CASE EVENT DATE: 2016
